FAERS Safety Report 5572985-1 (Version None)
Quarter: 2007Q4

REPORT INFORMATION
  Report Type: 
  Country: None (occurrence: None)
  Receive Date: 20071220
  Receipt Date: 20071205
  Transmission Date: 20080405
  Serious: Yes (Other)
  Sender: FDA-Public Use
  Company Number: 2007S1013134

PATIENT
  Age: 15 Year
  Sex: Female
  Weight: 86 kg

DRUGS (2)
  1. FLUVOXAMINE MALEATE [Suspect]
     Indication: DRUG USE FOR UNKNOWN INDICATION
     Dosage: 16.5 MG; ; ORAL
     Route: 048
     Dates: start: 20071204, end: 20071204
  2. IODINE (IODINE) [Suspect]
     Indication: DRUG USE FOR UNKNOWN INDICATION
     Dosage: ; ORAL
     Route: 048
     Dates: start: 20071204, end: 20071204

REACTIONS (1)
  - MULTIPLE DRUG OVERDOSE INTENTIONAL [None]
